FAERS Safety Report 8433733-0 (Version None)
Quarter: 2012Q2

REPORT INFORMATION
  Report Type: 
  Country: None (occurrence: None)
  Receive Date: 20120323
  Receipt Date: 20111130
  Transmission Date: 20120825
  Serious: Yes (Hospitalization)
  Sender: FDA-Public Use
  Company Number: 163-21880-11073210

PATIENT
  Age: 85 Year
  Sex: Female

DRUGS (8)
  1. TOPROL-XL [Concomitant]
  2. DIGOXIN [Concomitant]
  3. LEVOTHYROXINE SODIUM [Concomitant]
  4. PACKED RBC (RED BLOOD CELLS, CONCENTRATE) [Concomitant]
  5. ASPIRIN [Concomitant]
  6. REVLIMID [Suspect]
     Indication: MULTIPLE MYELOMA
     Dosage: 10 MG, 1 IN 1 D, PO
     Route: 048
     Dates: start: 20110308
  7. DEXAMETHASONE [Concomitant]
  8. ZANTAC [Concomitant]

REACTIONS (1)
  - CARDIAC FAILURE CONGESTIVE [None]
